FAERS Safety Report 23001213 (Version 2)
Quarter: 2023Q4

REPORT INFORMATION
  Report Type: Report from Study
  Country: CA (occurrence: None)
  Receive Date: 20230928
  Receipt Date: 20231003
  Transmission Date: 20240109
  Serious: Yes (Other)
  Sender: FDA-Public Use
  Company Number: 2023A217252

PATIENT
  Sex: Female

DRUGS (11)
  1. TEZSPIRE [Suspect]
     Active Substance: TEZEPELUMAB-EKKO
     Indication: Asthma
     Dosage: 210.0MG UNKNOWN
     Route: 058
     Dates: start: 20230330
  2. VENTOLIN [Concomitant]
     Active Substance: ALBUTEROL SULFATE
     Dosage: AS NEEDED
  3. OMINARIS [Concomitant]
     Dosage: NASAL SPRAY
  4. PANTOPRAZOLE [Concomitant]
     Active Substance: PANTOPRAZOLE
     Dosage: 1 TABLET IN MORNING BEFORE MEAL
  5. OLMESARTAN [Concomitant]
     Active Substance: OLMESARTAN
     Dosage: 40MG 1 TABLET EVERY MORNING
  6. LEVOTHYROXINE [Concomitant]
     Active Substance: LEVOTHYROXINE
     Dosage: 50MCG 1 TABLET ONCE DAILY
  7. DOMPERIDONE [Concomitant]
     Active Substance: DOMPERIDONE
     Dosage: 1 TABLET TWICE DAILY 1/2HR BEFORE MEAL
  8. AMLODIPINE [Concomitant]
     Active Substance: AMLODIPINE BESYLATE
     Dosage: 10MG 1 TABLET AT BEDTIME
  9. FLUTICASONE [Concomitant]
     Active Substance: FLUTICASONE
     Dosage: NASAL SPRAY,25MCG 1 TIME TWICE DAILY
  10. ADVAIR HFA [Concomitant]
     Active Substance: FLUTICASONE PROPIONATE\SALMETEROL XINAFOATE
     Dosage: 25MCG 2 PUFFS TWICE DAILY
  11. SPIRIVA RESPIMAT [Concomitant]
     Active Substance: TIOTROPIUM BROMIDE
     Dosage: 2 PUFFS DAILY 2.5MCG

REACTIONS (1)
  - Hypertension [Unknown]
